FAERS Safety Report 17926432 (Version 3)
Quarter: 2024Q3

REPORT INFORMATION
  Report Type: Spontaneous
  Country: US (occurrence: US)
  Receive Date: 20200623
  Receipt Date: 20240820
  Transmission Date: 20241017
  Serious: No
  Sender: INCYTE
  Company Number: US-INCYTE CORPORATION-2020IN005841

PATIENT

DRUGS (15)
  1. JAKAFI [Suspect]
     Active Substance: RUXOLITINIB
     Indication: Myelofibrosis
     Dosage: 20 MG QAM AND 15MG QPM
     Route: 048
     Dates: start: 20190921, end: 20200612
  2. JAKAFI [Suspect]
     Active Substance: RUXOLITINIB
     Dosage: 15 MILLIGRAM, BID
     Route: 065
  3. JAKAFI [Suspect]
     Active Substance: RUXOLITINIB
     Dosage: 10 MILLIGRAM, BID
     Route: 048
     Dates: start: 20191007
  4. JAKAFI [Suspect]
     Active Substance: RUXOLITINIB
     Dosage: 15 MILLIGRAM, BID
     Route: 065
     Dates: start: 201911
  5. JAKAFI [Suspect]
     Active Substance: RUXOLITINIB
     Dosage: 20 MG QAM AND 15 MG QPM
     Route: 065
     Dates: start: 202004
  6. JAKAFI [Suspect]
     Active Substance: RUXOLITINIB
     Dosage: 15 MILLIGRAM, BID
     Route: 065
     Dates: start: 20200611
  7. JAKAFI [Suspect]
     Active Substance: RUXOLITINIB
     Dosage: 20 MG QAM AND 15 MG QPM
     Route: 065
     Dates: start: 20200701
  8. JAKAFI [Suspect]
     Active Substance: RUXOLITINIB
     Dosage: 20 MILLIGRAM, QAM
     Route: 048
     Dates: start: 201909
  9. ZETIA [Suspect]
     Active Substance: EZETIMIBE
     Dosage: UNK
     Route: 065
  10. HYDROXYUREA [Concomitant]
     Active Substance: HYDROXYUREA
     Indication: Product used for unknown indication
     Dosage: 500/1000
     Route: 065
  11. HYDROXYUREA [Concomitant]
     Active Substance: HYDROXYUREA
     Dosage: 500 MILLIGRAM, QD (DECREASED DOSE)
     Route: 065
     Dates: start: 201511
  12. HYDROXYUREA [Concomitant]
     Active Substance: HYDROXYUREA
     Dosage: BACK UP TO 500/1000
     Route: 065
  13. HYDROXYUREA [Concomitant]
     Active Substance: HYDROXYUREA
     Dosage: TITRATING OFF HU OVER 2-3 WEEKS
     Route: 065
  14. ASPIRIN [Concomitant]
     Active Substance: ASPIRIN
     Indication: Product used for unknown indication
     Dosage: 81 MILLIGRAM, QD
     Route: 065
  15. MINERALS\VITAMINS [Concomitant]
     Active Substance: MINERALS\VITAMINS
     Indication: Product used for unknown indication
     Dosage: UNK
     Route: 065

REACTIONS (12)
  - Abdominal pain [Not Recovered/Not Resolved]
  - Abdominal distension [Not Recovered/Not Resolved]
  - Gallbladder polyp [Unknown]
  - Muscular weakness [Unknown]
  - Laboratory test abnormal [Unknown]
  - Fatigue [Not Recovered/Not Resolved]
  - Platelet count increased [Unknown]
  - Diarrhoea [Unknown]
  - Nausea [Unknown]
  - Haemoglobin decreased [Unknown]
  - Blood triglycerides increased [Unknown]
  - Blood cholesterol increased [Unknown]
